FAERS Safety Report 9264975 (Version 2)
Quarter: 2013Q2

REPORT INFORMATION
  Report Type: Spontaneous
  Country: FR (occurrence: None)
  Receive Date: 20130429
  Receipt Date: 20130506
  Transmission Date: 20140414
  Serious: Yes (Hospitalization)
  Sender: FDA-Public Use
  Company Number: FK201301290

PATIENT
  Age: 28 Year
  Sex: Female

DRUGS (3)
  1. METHOTREXATE [Suspect]
     Indication: NON-HODGKIN^S LYMPHOMA
  2. SODIUM BICARBONATE [Suspect]
  3. CEFOTAXIME (CEFOTAXIME) [Concomitant]

REACTIONS (14)
  - Drug interaction [None]
  - Toxicity to various agents [None]
  - Pyrexia [None]
  - Chills [None]
  - Drug level increased [None]
  - Diarrhoea [None]
  - Mucosal inflammation [None]
  - Skin necrosis [None]
  - Stem cell transplant [None]
  - Aplasia [None]
  - Trichosporon infection [None]
  - Pancytopenia [None]
  - Drug clearance decreased [None]
  - pH urine increased [None]
